FAERS Safety Report 5529007-8 (Version None)
Quarter: 2007Q4

REPORT INFORMATION
  Report Type: 
  Country: None (occurrence: None)
  Receive Date: 20071129
  Receipt Date: 20071122
  Transmission Date: 20080405
  Serious: Yes (Hospitalization)
  Sender: FDA-Public Use
  Company Number: PHRM2007FR02642

PATIENT
  Age: 72 Year
  Sex: Male

DRUGS (7)
  1. FENOFIBRATE [Concomitant]
     Dosage: 160 MG, QD
     Route: 048
     Dates: end: 20070830
  2. MODOPAR [Suspect]
     Dosage: 750 MG/DAY (UNSPECIFIED)
     Route: 048
  3. MODOPAR [Suspect]
     Dosage: 850 MG/DAY (UNSPECIFIED)
     Route: 048
  4. COMTAN [Suspect]
     Dosage: 600 MG, QD
     Route: 048
  5. ATHYMIL [Concomitant]
     Dosage: 30 MG, QD
     Route: 048
  6. LANTUS [Concomitant]
     Dosage: 44 U, QD
     Route: 058
  7. KARDEGIC [Concomitant]
     Dosage: 160 MG, QD
     Route: 048

REACTIONS (8)
  - DEHYDRATION [None]
  - EXTRAPYRAMIDAL DISORDER [None]
  - GAIT DISTURBANCE [None]
  - HYPOVOLAEMIA [None]
  - MUSCULAR WEAKNESS [None]
  - MYALGIA [None]
  - ORTHOSTATIC HYPOTENSION [None]
  - PARKINSONIAN REST TREMOR [None]
